FAERS Safety Report 14112757 (Version 1)
Quarter: 2017Q4

REPORT INFORMATION
  Report Type: Spontaneous
  Country: IN (occurrence: IN)
  Receive Date: 20171021
  Receipt Date: 20171021
  Transmission Date: 20180321
  Serious: Yes (Death, Other)
  Sender: FDA-Public Use
  Company Number: IN-HQ SPECIALTY-IN-2017INT000368

PATIENT

DRUGS (3)
  1. CISPLATIN. [Suspect]
     Active Substance: CISPLATIN
     Indication: OSTEOSARCOMA
     Dosage: 33 MG/M2, ON DAYS 1-3 (NACT CYCLE 1 AND 2)
  2. DOXORUBICIN [Suspect]
     Active Substance: DOXORUBICIN
     Indication: OSTEOSARCOMA
     Dosage: 25 MG/M2, ON DAYS 1-3 (NACT CYCLE 1 AND 4)
  3. IFOSFAMIDE. [Suspect]
     Active Substance: IFOSFAMIDE
     Indication: OSTEOSARCOMA
     Dosage: 1.8 G/M2, ON DAYS 1-5 (NACT CYCLE 3 AND 4)

REACTIONS (1)
  - Acute myeloid leukaemia [Fatal]
